FAERS Safety Report 4989947-5 (Version None)
Quarter: 2006Q2

REPORT INFORMATION
  Report Type: 
  Country: None (occurrence: None)
  Receive Date: 20060503
  Receipt Date: 20060420
  Transmission Date: 20061013
  Serious: Yes (Other)
  Sender: FDA-Public Use
  Company Number: US-AMGEN-US177394

PATIENT
  Age: 40 Year
  Sex: Female
  Weight: 63.6 kg

DRUGS (2)
  1. PROCRIT [Suspect]
     Indication: DIALYSIS
     Route: 042
     Dates: start: 20040101
  2. ANTIBIOTICS NOS [Concomitant]
     Dates: start: 20060301

REACTIONS (3)
  - APLASIA PURE RED CELL [None]
  - ERYTHEMA INFECTIOSUM [None]
  - SEPSIS [None]
